FAERS Safety Report 8887947 (Version 2)
Quarter: 2013Q1

REPORT INFORMATION
  Report Type: Spontaneous
  Country: US (occurrence: US)
  Receive Date: 20121106
  Receipt Date: 20130318
  Transmission Date: 20140127
  Serious: No
  Sender: FDA-Public Use
  Company Number: US-BIOGENIDEC-2012BI048362

PATIENT
  Age: 50 None
  Sex: Female

DRUGS (1)
  1. TYSABRI [Suspect]
     Indication: MULTIPLE SCLEROSIS
     Route: 042
     Dates: start: 20111007

REACTIONS (4)
  - Balance disorder [Not Recovered/Not Resolved]
  - Somnolence [Recovered/Resolved]
  - Spinal cord injury [Not Recovered/Not Resolved]
  - Fatigue [Recovered/Resolved]
